FAERS Safety Report 9399770 (Version 1)
Quarter: 2013Q3

REPORT INFORMATION
  Report Type: Spontaneous
  Country: BR (occurrence: BR)
  Receive Date: 20130715
  Receipt Date: 20130715
  Transmission Date: 20140515
  Serious: Yes (Hospitalization)
  Sender: FDA-Public Use
  Company Number: BR-B.I. PHARMACEUTICALS,INC./RIDGEFIELD-2013-BR-00811BR

PATIENT
  Age: 1 Year
  Sex: Female
  Weight: 9 kg

DRUGS (1)
  1. ATROVENT [Suspect]
     Indication: PYREXIA
     Dosage: 7 ANZ
     Route: 048
     Dates: start: 20130706, end: 20130706

REACTIONS (2)
  - Wrong drug administered [Recovered/Resolved]
  - Tachycardia [Recovered/Resolved]
